FAERS Safety Report 6653720-2 (Version None)
Quarter: 2010Q1

REPORT INFORMATION
  Report Type: 
  Country: None (occurrence: None)
  Receive Date: 20100326
  Receipt Date: 20090505
  Transmission Date: 20100710
  Serious: Yes (Hospitalization)
  Sender: FDA-Public Use
  Company Number: US-SANOFI-AVENTIS-F01200700503

PATIENT
  Age: 64 Year
  Sex: Female
  Weight: 87.3 kg

DRUGS (15)
  1. OXALIPLATIN [Suspect]
     Dosage: DOSE TEXT: 163.2 MGUNIT DOSE: 85 MG/M2
     Route: 041
     Dates: start: 20061129, end: 20061129
  2. OXALIPLATIN [Suspect]
     Route: 041
     Dates: start: 20060816, end: 20060816
  3. DOCETAXEL [Suspect]
     Dosage: DOSE TEXT: 144 MGUNIT DOSE: 75 MG/M2
     Route: 041
     Dates: start: 20061129, end: 20061129
  4. DOCETAXEL [Suspect]
     Route: 041
     Dates: start: 20060816, end: 20060816
  5. BEVACIZUMAB [Suspect]
     Dosage: UNIT DOSE: 15 MG/KG
     Route: 041
     Dates: start: 20070406, end: 20070406
  6. BEVACIZUMAB [Suspect]
     Route: 041
     Dates: start: 20060816, end: 20060816
  7. PREVACID [Concomitant]
     Dosage: UNIT DOSE: 30 MG
     Route: 048
     Dates: start: 20060101
  8. IBUPROFEN [Concomitant]
     Route: 048
     Dates: start: 20060701
  9. PERCOCET [Concomitant]
     Indication: PAIN
     Route: 048
     Dates: start: 20060809
  10. EMLA [Concomitant]
     Route: 061
     Dates: start: 20060809
  11. COUMADIN [Concomitant]
     Dosage: UNIT DOSE: 1 MG
     Route: 048
     Dates: start: 20060809
  12. COMPAZINE [Concomitant]
     Indication: NAUSEA
     Route: 065
     Dates: start: 20060809
  13. ZOFRAN [Concomitant]
     Indication: NAUSEA
     Route: 065
     Dates: start: 20060809
  14. ZELNORM /USA/ [Concomitant]
     Indication: IRRITABLE BOWEL SYNDROME
     Dosage: UNIT DOSE: 6 MG
     Route: 048
     Dates: start: 20061115
  15. EFFEXOR [Concomitant]
     Indication: DEPRESSION
     Dosage: UNIT DOSE: 150 MG
     Route: 048
     Dates: start: 20070214

REACTIONS (1)
  - CARDIAC FAILURE CONGESTIVE [None]
